FAERS Safety Report 9535962 (Version 1)
Quarter: 2013Q2

REPORT INFORMATION
  Report Type: Spontaneous
  Country: US (occurrence: None)
  Receive Date: 20130507
  Receipt Date: 20130507
  Transmission Date: 20140414
  Serious: Yes (Other)
  Sender: FDA-Public Use
  Company Number: PHEH2013US002658

PATIENT
  Age: 28 Year
  Sex: Male

DRUGS (4)
  1. AFINITOR (RAD) UNKNOWN [Suspect]
     Indication: TUBEROUS SCLEROSIS
     Dosage: 5 MG/DAY
     Route: 048
     Dates: start: 20121129
  2. CELEXA (CITALOPRAM HYDROBROMIDE) [Concomitant]
  3. TEGRETOL (CARBAMAZEPINE) UNKNOWN [Concomitant]
  4. RISPERDAL (RISPERIDONE) [Concomitant]

REACTIONS (2)
  - Depression [None]
  - Affective disorder [None]
